FAERS Safety Report 22108678 (Version 1)
Quarter: 2023Q1

REPORT INFORMATION
  Report Type: Spontaneous
  Country: US (occurrence: US)
  Receive Date: 20230317
  Receipt Date: 20230317
  Transmission Date: 20230418
  Serious: Yes (Other)
  Sender: FDA-Public Use
  Company Number: US-GLAXOSMITHKLINE-US2023AMR039220

PATIENT

DRUGS (1)
  1. ZEJULA [Suspect]
     Active Substance: NIRAPARIB
     Indication: Ovarian cancer
     Dosage: 100 MG, QD
     Route: 048
     Dates: start: 20230119

REACTIONS (7)
  - Neuropathy peripheral [Recovering/Resolving]
  - Musculoskeletal discomfort [Recovering/Resolving]
  - Neck pain [Recovering/Resolving]
  - Muscle spasms [Recovering/Resolving]
  - Pain [Recovering/Resolving]
  - Cervical radiculopathy [Unknown]
  - Off label use [Unknown]

NARRATIVE: CASE EVENT DATE: 20230119
